FAERS Safety Report 10554842 (Version 2)
Quarter: 2014Q4

REPORT INFORMATION
  Report Type: Spontaneous
  Country: JP (occurrence: JP)
  Receive Date: 20141030
  Receipt Date: 20141112
  Transmission Date: 20150529
  Serious: Yes (Other)
  Sender: FDA-Public Use
  Company Number: JP-PFIZER INC-2014297132

PATIENT
  Age: 44 Year
  Sex: Female
  Weight: 63 kg

DRUGS (1)
  1. NASANYL [Suspect]
     Active Substance: NAFARELIN ACETATE
     Indication: UTERINE LEIOMYOMA
     Dosage: 1 DF, 2X/DAY
     Route: 045
     Dates: start: 20140408, end: 20140910

REACTIONS (1)
  - Hypertension [Recovered/Resolved]

NARRATIVE: CASE EVENT DATE: 20140801
